FAERS Safety Report 13959161 (Version 1)
Quarter: 2017Q3

REPORT INFORMATION
  Report Type: Spontaneous
  Country: FR (occurrence: FR)
  Receive Date: 20170912
  Receipt Date: 20170912
  Transmission Date: 20171128
  Serious: Yes (Hospitalization)
  Sender: FDA-Public Use
  Company Number: FR-ACCORD-058260

PATIENT
  Age: 64 Year
  Sex: Male

DRUGS (5)
  1. INSTANYL [Concomitant]
     Active Substance: FENTANYL
  2. FLUOROURACIL ACCORD [Suspect]
     Active Substance: FLUOROURACIL
     Indication: SQUAMOUS CELL CARCINOMA
     Route: 042
     Dates: start: 20170807, end: 20170810
  3. HYDREA [Suspect]
     Active Substance: HYDROXYUREA
     Indication: SQUAMOUS CELL CARCINOMA
     Dosage: STRENGTH: 500 MG
     Route: 048
     Dates: start: 20170807, end: 20170811
  4. DUROGESIC [Concomitant]
     Active Substance: FENTANYL
  5. DUPHALAC [Concomitant]
     Active Substance: LACTULOSE

REACTIONS (2)
  - Pericarditis [Recovering/Resolving]
  - Chest pain [Recovering/Resolving]

NARRATIVE: CASE EVENT DATE: 20170809
